FAERS Safety Report 8082142-5 (Version None)
Quarter: 2012Q1

REPORT INFORMATION
  Report Type: 
  Country: None (occurrence: None)
  Receive Date: 20120130
  Receipt Date: 20120120
  Transmission Date: 20120608
  Serious: Yes (Other)
  Sender: FDA-Public Use
  Company Number: US-AMGEN-USASP2011056428

PATIENT
  Age: 68 Year
  Sex: Female

DRUGS (1)
  1. ENBREL [Suspect]
     Indication: RHEUMATOID ARTHRITIS
     Dosage: 50 MG, QWK
     Dates: start: 20071213, end: 20110801

REACTIONS (8)
  - LIGAMENT SPRAIN [None]
  - GAIT DISTURBANCE [None]
  - PARAESTHESIA [None]
  - NECK PAIN [None]
  - OEDEMA PERIPHERAL [None]
  - ROTATOR CUFF SYNDROME [None]
  - PAIN [None]
  - FALL [None]
